FAERS Safety Report 7423132-2 (Version None)
Quarter: 2011Q2

REPORT INFORMATION
  Report Type: 
  Country: None (occurrence: None)
  Receive Date: 20110413
  Receipt Date: 20110413
  Transmission Date: 20111010
  Serious: Yes (Other)
  Sender: FDA-Public Use
  Company Number: None

PATIENT
  Age: 47 Year
  Sex: Female
  Weight: 70.3075 kg

DRUGS (1)
  1. VENLAFAXINE HCL EXTENDED-RELEASE [Suspect]
     Indication: DEPRESSION
     Dosage: 150MG DAILY PO
     Route: 048
     Dates: start: 20110324, end: 20110412

REACTIONS (7)
  - IRRITABILITY [None]
  - AGGRESSION [None]
  - PANIC DISORDER [None]
  - PRODUCT SUBSTITUTION ISSUE [None]
  - ANXIETY [None]
  - HALLUCINATION [None]
  - MOOD ALTERED [None]
